FAERS Safety Report 6588697-1 (Version None)
Quarter: 2010Q1

REPORT INFORMATION
  Report Type: 
  Country: None (occurrence: None)
  Receive Date: 20100218
  Receipt Date: 20100211
  Transmission Date: 20100710
  Serious: Yes (Death)
  Sender: FDA-Public Use
  Company Number: US-GILEAD-2010-0026666

PATIENT
  Sex: Female

DRUGS (16)
  1. LETAIRIS [Suspect]
     Indication: PULMONARY ARTERIAL HYPERTENSION
     Route: 048
     Dates: start: 20090429
  2. AMLODIPINE [Concomitant]
  3. GABAPENTIN [Concomitant]
  4. SIMVASTATIN [Concomitant]
  5. HYDROCHLOROTHIAZIDE [Concomitant]
  6. ASPIRIN [Concomitant]
  7. NITROGLYCERIN [Concomitant]
  8. PLAVIX [Concomitant]
  9. FLAGYL [Concomitant]
  10. NEXIUM [Concomitant]
  11. PANCRELIPASE [Concomitant]
  12. TRAMADOL [Concomitant]
  13. SUCRALFATE [Concomitant]
  14. VITAMIN B COMPLEX CAP [Concomitant]
  15. MULTI-VITAMINS [Concomitant]
  16. FISH OIL [Concomitant]

REACTIONS (1)
  - DEATH [None]
